FAERS Safety Report 14250951 (Version 1)
Quarter: 2017Q4

REPORT INFORMATION
  Report Type: Spontaneous
  Country: US (occurrence: None)
  Receive Date: 20171205
  Receipt Date: 20171205
  Transmission Date: 20180321
  Serious: Yes (Other)
  Sender: FDA-Public Use
  Company Number: None

PATIENT
  Age: 55 Year
  Sex: Female
  Weight: 99.34 kg

DRUGS (4)
  1. VERAPAMIL ER [Concomitant]
     Active Substance: VERAPAMIL HYDROCHLORIDE
  2. BETA CAROTENE [Concomitant]
  3. NIACIN 500MG TABLET (SIO-NIACIN) [Suspect]
     Active Substance: NIACIN
     Indication: BLOOD CHOLESTEROL INCREASED
     Dosage: 500MG PER PILL (60) 2 PILLS AT BEDTIME BY MOUTH
     Route: 048
     Dates: start: 20171012
  4. METOPROLOL TARTRATE. [Concomitant]
     Active Substance: METOPROLOL TARTRATE

REACTIONS (2)
  - Abdominal pain upper [None]
  - Burning sensation [None]

NARRATIVE: CASE EVENT DATE: 20171018
